FAERS Safety Report 17299069 (Version 3)
Quarter: 2020Q2

REPORT INFORMATION
  Report Type: Report from Study
  Country: GB (occurrence: GB)
  Receive Date: 20200121
  Receipt Date: 20200507
  Transmission Date: 20200713
  Serious: Yes (Death, Hospitalization, Other)
  Sender: FDA-Public Use
  Company Number: GB-PFM-2020-00787

PATIENT

DRUGS (24)
  1. VINORELBINE TARTRATE. [Suspect]
     Active Substance: VINORELBINE TARTRATE
     Dosage: 140 MG, UNK
     Route: 048
     Dates: start: 20151230, end: 20160115
  2. TRAMADOL. [Concomitant]
     Active Substance: TRAMADOL
     Indication: PAIN
     Dosage: 50 MG, AS NEEDED
     Route: 048
     Dates: end: 20160908
  3. CAPECITABINE. [Suspect]
     Active Substance: CAPECITABINE
     Indication: BREAST CANCER METASTATIC
     Dosage: 3000 MG, QD (1/DAY)
     Route: 048
     Dates: start: 20160603, end: 20160623
  4. TRASTUZUMAB, HYALURONIDASE (HUMAN RECOMBINANT) [Suspect]
     Active Substance: HYALURONIDASE (HUMAN RECOMBINANT)\TRASTUZUMAB
     Indication: BREAST CANCER METASTATIC
     Dosage: 600 MG, UNK
     Route: 058
     Dates: start: 20151005, end: 20160908
  5. GABAPENTIN. [Concomitant]
     Active Substance: GABAPENTIN
     Indication: PRODUCT USED FOR UNKNOWN INDICATION
     Dosage: 600 MG, QD (1/DAY)
     Route: 048
     Dates: end: 20160908
  6. ATORVASTATIN [Concomitant]
     Active Substance: ATORVASTATIN
     Indication: PRODUCT USED FOR UNKNOWN INDICATION
     Dosage: 40 MG, QD (1/DAY)
     Route: 048
     Dates: end: 20160908
  7. LAXIDO [Concomitant]
     Active Substance: POLYETHYLENE GLYCOL 3350\POTASSIUM CHLORIDE\SODIUM BICARBONATE\SODIUM CHLORIDE
     Dosage: UNK UNK, QD (1/DAY)
     Route: 048
     Dates: start: 20160809, end: 20160809
  8. OMEPRAZOLE. [Concomitant]
     Active Substance: OMEPRAZOLE
     Indication: GASTRIC POLYPS
     Dosage: 40 MG, QD (1/DAY)
     Route: 048
     Dates: end: 20160908
  9. LAXIDO [Concomitant]
     Active Substance: POLYETHYLENE GLYCOL 3350\POTASSIUM CHLORIDE\SODIUM BICARBONATE\SODIUM CHLORIDE
     Indication: CONSTIPATION
     Dosage: UNK
     Route: 048
     Dates: end: 20160908
  10. VINORELBINE TARTRATE. [Suspect]
     Active Substance: VINORELBINE TARTRATE
     Dosage: 110 MG, UNK
     Route: 048
     Dates: start: 20151002, end: 20151030
  11. VINORELBINE TARTRATE. [Suspect]
     Active Substance: VINORELBINE TARTRATE
     Dosage: 150 MG, UNK
     Route: 048
     Dates: start: 20151204, end: 20151223
  12. CAPECITABINE. [Suspect]
     Active Substance: CAPECITABINE
     Indication: PRODUCT USED FOR UNKNOWN INDICATION
     Dosage: 3600 UNK, QD (1/DAY)
     Route: 048
     Dates: start: 20160401, end: 20160603
  13. CAPECITABINE. [Suspect]
     Active Substance: CAPECITABINE
     Dosage: 3600 MG, UNK
     Route: 048
     Dates: start: 20160331
  14. ADCAL D3 [Concomitant]
     Active Substance: CALCIUM CARBONATE\CHOLECALCIFEROL
     Indication: PRODUCT USED FOR UNKNOWN INDICATION
     Dosage: 1 UNK, QD (1/DAY)
     Route: 048
     Dates: end: 20160908
  15. OXYCODONE [Concomitant]
     Active Substance: OXYCODONE
     Indication: PRODUCT USED FOR UNKNOWN INDICATION
     Dosage: 5 MG, AS NEEDED.
     Route: 048
     Dates: end: 20160908
  16. DOCUSATE SODIUM. [Concomitant]
     Active Substance: DOCUSATE SODIUM
     Indication: PRODUCT USED FOR UNKNOWN INDICATION
     Dosage: 200 MG, QD (1/DAY)
     Route: 048
     Dates: end: 20160908
  17. ACYCLOVIR [ACICLOVIR] [Concomitant]
     Active Substance: ACYCLOVIR
     Indication: PRODUCT USED FOR UNKNOWN INDICATION
     Dosage: 5 %, QD (1/DAY)
     Route: 061
     Dates: start: 20020108, end: 20020113
  18. DENOSUMAB [Concomitant]
     Active Substance: DENOSUMAB
     Indication: PRODUCT USED FOR UNKNOWN INDICATION
     Dosage: 120 MG, 1 MONTH
     Route: 058
     Dates: end: 20160824
  19. VINORELBINE TARTRATE. [Suspect]
     Active Substance: VINORELBINE TARTRATE
     Indication: BREAST CANCER METASTATIC
     Dosage: 150 MG, UNK
     Route: 048
     Dates: start: 20160122, end: 20160318
  20. VINORELBINE TARTRATE. [Suspect]
     Active Substance: VINORELBINE TARTRATE
     Dosage: 140 MG, UNK
     Route: 048
     Dates: start: 20151113, end: 20151120
  21. TAMOXIFEN [Suspect]
     Active Substance: TAMOXIFEN
     Indication: BREAST CANCER METASTATIC
     Dosage: 20 MG, QD (1/DAY)
     Route: 048
     Dates: start: 20160708, end: 20160908
  22. ASPIRIN [ACETYLSALICYLIC ACID] [Concomitant]
     Active Substance: ASPIRIN
     Indication: PRODUCT USED FOR UNKNOWN INDICATION
     Dosage: 75 MG, QD (1/DAY)
     Route: 048
     Dates: end: 20160908
  23. PYRIDOXINE [Concomitant]
     Active Substance: PYRIDOXINE
     Indication: PRODUCT USED FOR UNKNOWN INDICATION
     Dosage: TO MITIGATE POTENTIAL NEUROLOGICAL SIDE EFFECTS OF CHEMOTHERAPY
     Route: 048
     Dates: start: 20160525, end: 20160908
  24. OMEPRAZOLE. [Concomitant]
     Active Substance: OMEPRAZOLE
     Indication: PROPHYLAXIS
     Route: 065

REACTIONS (17)
  - Sepsis [Recovered/Resolved]
  - Hypoglycaemia [Recovered/Resolved]
  - Dizziness [Not Recovered/Not Resolved]
  - Death [Fatal]
  - Musculoskeletal pain [Recovered/Resolved]
  - Constipation [Recovered/Resolved]
  - Oral pain [Recovered/Resolved]
  - Mucosal inflammation [Recovered/Resolved]
  - Dyspnoea exertional [Recovered/Resolved]
  - Palmar-plantar erythrodysaesthesia syndrome [Unknown]
  - Cough [Recovered/Resolved]
  - Lymphoedema [Recovered/Resolved]
  - Fatigue [Recovered/Resolved]
  - Lower respiratory tract infection [Recovered/Resolved]
  - Hepatic pain [Recovered/Resolved]
  - Fatigue [Unknown]
  - Lymphadenopathy [Recovered/Resolved]

NARRATIVE: CASE EVENT DATE: 20160211
